FAERS Safety Report 6828125-1 (Version None)
Quarter: 2010Q3

REPORT INFORMATION
  Report Type: 
  Country: None (occurrence: None)
  Receive Date: 20100709
  Receipt Date: 20070129
  Transmission Date: 20110219
  Serious: No
  Sender: FDA-Public Use
  Company Number: US-PFIZER INC-2007008859

PATIENT
  Sex: Female
  Weight: 46.72 kg

DRUGS (6)
  1. CHANTIX [Suspect]
     Indication: SMOKING CESSATION THERAPY
     Dates: start: 20070112
  2. VYTORIN [Concomitant]
  3. TOPROL-XL [Concomitant]
  4. NORVASC [Concomitant]
  5. IMDUR [Concomitant]
  6. ESTRATEST [Concomitant]

REACTIONS (4)
  - ABNORMAL DREAMS [None]
  - ENURESIS [None]
  - INSOMNIA [None]
  - NAUSEA [None]
